FAERS Safety Report 15157739 (Version 9)
Quarter: 2019Q3

REPORT INFORMATION
  Report Type: Spontaneous
  Country: US (occurrence: US)
  Receive Date: 20180718
  Receipt Date: 20190718
  Transmission Date: 20191004
  Serious: Yes (Hospitalization, Other)
  Sender: FDA-Public Use
  Company Number: US-PFIZER INC-2018092977

PATIENT
  Age: 78 Year
  Sex: Male
  Weight: 85 kg

DRUGS (4)
  1. LETROZOLE. [Concomitant]
     Active Substance: LETROZOLE
     Indication: BREAST CANCER METASTATIC
     Dosage: 2.5 MG, 1X/DAY
     Route: 048
  2. TOUJEO [Concomitant]
     Active Substance: INSULIN GLARGINE
     Indication: DIABETES MELLITUS
     Dosage: 30 IU, 1X/DAY
  3. IBRANCE [Suspect]
     Active Substance: PALBOCICLIB
     Indication: BREAST CANCER METASTATIC
     Dosage: 125 MG, CYCLIC (EVERY DAY FOR 21 DAYS, ONE WEEK OFF, THEN RESUME CYCLE AGAIN)
     Route: 048
     Dates: start: 2018
  4. IBRANCE [Suspect]
     Active Substance: PALBOCICLIB
     Dosage: 125 MG, UNK

REACTIONS (18)
  - Mood altered [Unknown]
  - Oesophageal disorder [Unknown]
  - Product use issue [Unknown]
  - Foreign body in respiratory tract [Unknown]
  - Productive cough [Unknown]
  - Off label use [Unknown]
  - Dysphagia [Unknown]
  - Neoplasm progression [Unknown]
  - Oesophageal infection [Unknown]
  - Anger [Unknown]
  - Bronchitis [Unknown]
  - Pneumothorax [Unknown]
  - Dyspnoea [Recovered/Resolved]
  - Blood potassium increased [Unknown]
  - Malaise [Unknown]
  - Product dose omission [Unknown]
  - Cough [Recovered/Resolved]
  - Agitation [Unknown]

NARRATIVE: CASE EVENT DATE: 2018
